FAERS Safety Report 6179121-1 (Version None)
Quarter: 2009Q2

REPORT INFORMATION
  Report Type: 
  Country: None (occurrence: None)
  Receive Date: 20090430
  Receipt Date: 20090421
  Transmission Date: 20091009
  Serious: Yes (Life-Threatening, Hospitalization)
  Sender: FDA-Public Use
  Company Number: 233844K09USA

PATIENT
  Sex: Female
  Weight: 82 kg

DRUGS (3)
  1. REBIF [Suspect]
     Indication: MULTIPLE SCLEROSIS
     Dosage: 44 MCG, 3 IN 1 WEEKS, SUBCUTANEOUS
     Route: 058
     Dates: start: 20040101
  2. CYMBALTA [Concomitant]
  3. PERCOCET [Concomitant]

REACTIONS (3)
  - FALL [None]
  - OVERDOSE [None]
  - SUICIDE ATTEMPT [None]
